FAERS Safety Report 23570733 (Version 1)
Quarter: 2024Q1

REPORT INFORMATION
  Report Type: Spontaneous
  Country: US (occurrence: None)
  Receive Date: 20240226
  Receipt Date: 20240226
  Transmission Date: 20240410
  Serious: Yes (Life-Threatening)
  Sender: FDA-Public Use
  Company Number: None

PATIENT
  Age: 57 Year
  Sex: Female
  Weight: 63 kg

DRUGS (15)
  1. VYEPTI [Suspect]
     Active Substance: EPTINEZUMAB-JJMR
     Indication: Migraine
     Dosage: OTHER QUANTITY : 1 INFUSION;?OTHER FREQUENCY : EVERY 3 MONTHS;?
     Route: 042
     Dates: start: 20231114, end: 20231114
  2. HUMIRA [Concomitant]
     Active Substance: ADALIMUMAB
  3. GABAPENTIN [Concomitant]
     Active Substance: GABAPENTIN
  4. PLAQUENIL [Concomitant]
     Active Substance: HYDROXYCHLOROQUINE SULFATE
  5. PROPRANOLOL [Concomitant]
     Active Substance: PROPRANOLOL HYDROCHLORIDE
  6. PROLIA [Concomitant]
     Active Substance: DENOSUMAB
  7. NORCO [Concomitant]
     Active Substance: ACETAMINOPHEN\HYDROCODONE BITARTRATE
  8. FLEXERIL [Concomitant]
     Active Substance: CYCLOBENZAPRINE HYDROCHLORIDE
  9. ALBUTEROL [Concomitant]
     Active Substance: ALBUTEROL
  10. QVAR [Concomitant]
     Active Substance: BECLOMETHASONE DIPROPIONATE
  11. PREDNISONE [Concomitant]
     Active Substance: PREDNISONE
  12. FISH OIL [Concomitant]
     Active Substance: FISH OIL
  13. CALCIUM [Concomitant]
     Active Substance: CALCIUM
  14. VITAMIN D [Concomitant]
     Active Substance: VITAMIN D NOS
  15. HERBALS\TURMERIC [Concomitant]
     Active Substance: HERBALS\TURMERIC

REACTIONS (7)
  - Infusion related reaction [None]
  - Anaphylactic reaction [None]
  - Throat tightness [None]
  - Productive cough [None]
  - Dyspnoea [None]
  - Cough [None]
  - Dysphonia [None]

NARRATIVE: CASE EVENT DATE: 20231114
